FAERS Safety Report 14609887 (Version 1)
Quarter: 2018Q1

REPORT INFORMATION
  Report Type: Spontaneous
  Country: GB (occurrence: GB)
  Receive Date: 20180307
  Receipt Date: 20180307
  Transmission Date: 20180509
  Serious: Yes (Hospitalization)
  Sender: FDA-Public Use
  Company Number: GB-LINDE-GB-LHC-2018051

PATIENT
  Sex: Female

DRUGS (1)
  1. LIQUID MEDICAL OXYGEN [Suspect]
     Active Substance: OXYGEN
     Indication: PRODUCT USED FOR UNKNOWN INDICATION
     Route: 055

REACTIONS (3)
  - Accidental underdose [Recovered/Resolved]
  - Device malfunction [Unknown]
  - Asthma [Recovered/Resolved]
